FAERS Safety Report 6641097-8 (Version None)
Quarter: 2010Q1

REPORT INFORMATION
  Report Type: 
  Country: None (occurrence: None)
  Receive Date: 20100318
  Receipt Date: 20091112
  Transmission Date: 20100710
  Serious: Yes (Hospitalization, Other)
  Sender: FDA-Public Use
  Company Number: US-ASTRAZENECA-2009SE26300

PATIENT
  Sex: Female

DRUGS (7)
  1. LISINOPRIL [Suspect]
     Route: 048
  2. ADVIL LIQUI-GELS [Suspect]
     Route: 065
  3. RAD001 AND FULVESTRANT [Suspect]
     Indication: BREAST CANCER METASTATIC
     Route: 048
     Dates: start: 20080723, end: 20090517
  4. FULVESTRANT [Concomitant]
     Dates: start: 20080723
  5. PRAVACHOL [Concomitant]
  6. ATIVAN [Concomitant]
  7. ZOMETA [Concomitant]

REACTIONS (3)
  - NAUSEA [None]
  - RENAL FAILURE ACUTE [None]
  - VOMITING [None]
